FAERS Safety Report 9331630 (Version 1)
Quarter: 2013Q2

REPORT INFORMATION
  Report Type: Spontaneous
  Country: CN (occurrence: CN)
  Receive Date: 20130605
  Receipt Date: 20130605
  Transmission Date: 20140414
  Serious: Yes (Other)
  Sender: FDA-Public Use
  Company Number: CN-ASTRAZENECA-2013SE40017

PATIENT
  Sex: Male
  Weight: 60 kg

DRUGS (2)
  1. ESOMEPRAZOLE MAGNESIUM [Suspect]
     Indication: VENOUS THROMBOSIS
     Route: 048
     Dates: start: 20120430, end: 20120507
  2. ESOMEPRAZOLE MAGNESIUM [Suspect]
     Indication: PROPHYLAXIS AGAINST GASTROINTESTINAL ULCER
     Route: 048
     Dates: start: 20120430, end: 20120507

REACTIONS (1)
  - Hepatic function abnormal [Recovered/Resolved]
